FAERS Safety Report 13024423 (Version 2)
Quarter: 2016Q4

REPORT INFORMATION
  Report Type: Spontaneous
  Country: AT (occurrence: AT)
  Receive Date: 20161213
  Receipt Date: 20161229
  Transmission Date: 20170207
  Serious: Yes (Other)
  Sender: FDA-Public Use
  Company Number: AT-BAXALTA-2016BLT009207

PATIENT
  Age: 4 Year
  Sex: Female
  Weight: 21 kg

DRUGS (4)
  1. KIOVIG [Suspect]
     Active Substance: HUMAN IMMUNOGLOBULIN G
     Indication: HYPOGAMMAGLOBULINAEMIA
     Dosage: 3.5 G, UNK
     Route: 042
     Dates: start: 20160704, end: 20160704
  2. INTRATECT [Suspect]
     Active Substance: HUMAN IMMUNOGLOBULIN G
     Indication: PRODUCT USED FOR UNKNOWN INDICATION
     Dosage: UNK
     Route: 042
  3. PRIVIGEN [Suspect]
     Active Substance: HUMAN IMMUNOGLOBULIN G
     Indication: PRODUCT USED FOR UNKNOWN INDICATION
     Dosage: UNK
     Route: 042
  4. PENTAGLOBIN [Suspect]
     Active Substance: HUMAN IMMUNOGLOBULIN G
     Indication: PRODUCT USED FOR UNKNOWN INDICATION
     Dosage: UNK
     Route: 042

REACTIONS (6)
  - Tachycardia [Recovered/Resolved]
  - Bronchospasm [Unknown]
  - Tachypnoea [Recovered/Resolved]
  - Oxygen saturation [Recovered/Resolved]
  - Allergy to immunoglobulin therapy [Unknown]
  - Cyanosis [Unknown]

NARRATIVE: CASE EVENT DATE: 20160704
